FAERS Safety Report 11627498 (Version 1)
Quarter: 2015Q4

REPORT INFORMATION
  Report Type: Spontaneous
  Country: US (occurrence: US)
  Receive Date: 20151013
  Receipt Date: 20151013
  Transmission Date: 20160304
  Serious: No
  Sender: FDA-Public Use
  Company Number: US-009507513-1509USA013996

PATIENT
  Age: 42 Year
  Sex: Female

DRUGS (4)
  1. BELSOMRA [Suspect]
     Active Substance: SUVOREXANT
     Indication: INSOMNIA
     Dosage: A TOTAL OF 3 TO 4 TIMES, PRN
     Route: 048
     Dates: start: 20150804, end: 20150819
  2. NORCO [Concomitant]
     Active Substance: ACETAMINOPHEN\HYDROCODONE BITARTRATE
  3. ROBAXIN [Concomitant]
     Active Substance: METHOCARBAMOL
  4. IBUPROFEN. [Concomitant]
     Active Substance: IBUPROFEN

REACTIONS (1)
  - Cataplexy [Recovered/Resolved]

NARRATIVE: CASE EVENT DATE: 201508
